FAERS Safety Report 21861954 (Version 1)
Quarter: 2023Q1

REPORT INFORMATION
  Report Type: Spontaneous
  Country: TR (occurrence: TR)
  Receive Date: 20230113
  Receipt Date: 20230113
  Transmission Date: 20230418
  Serious: Yes (Other)
  Sender: FDA-Public Use
  Company Number: TR-BAUSCH-BL-2023-000534

PATIENT
  Age: 15 Year
  Sex: Male

DRUGS (9)
  1. DEXAMETHASONE [Suspect]
     Active Substance: DEXAMETHASONE
     Indication: B precursor type acute leukaemia
     Route: 065
     Dates: start: 2017
  2. DEXAMETHASONE [Suspect]
     Active Substance: DEXAMETHASONE
     Indication: B precursor type acute leukaemia
     Dosage: BFM ALL IC-2009 PROTOCOL
     Route: 065
     Dates: start: 2015
  3. DEXAMETHASONE [Suspect]
     Active Substance: DEXAMETHASONE
     Dosage: ALL BFM 2002 PROTOCOL
     Route: 065
  4. VINCRISTINE [Suspect]
     Active Substance: VINCRISTINE
     Indication: B precursor type acute leukaemia
     Route: 065
     Dates: start: 2017
  5. BORTEZOMIB [Suspect]
     Active Substance: BORTEZOMIB
     Indication: B precursor type acute leukaemia
     Route: 065
     Dates: start: 2017
  6. PEGASPARGASE [Suspect]
     Active Substance: PEGASPARGASE
     Indication: B precursor type acute leukaemia
     Route: 065
     Dates: start: 2017
  7. DOXORUBICIN [Suspect]
     Active Substance: DOXORUBICIN
     Indication: B precursor type acute leukaemia
     Route: 065
     Dates: start: 2017
  8. CYTARABINE;FLUDARABINE [Concomitant]
     Indication: B precursor type acute leukaemia
     Dosage: FLAG-IDA PROTOCOL
     Dates: start: 2017
  9. IDARUBICIN [Concomitant]
     Active Substance: IDARUBICIN
     Indication: B precursor type acute leukaemia
     Dosage: FLAG-IDA PROTOCOL
     Dates: start: 2017

REACTIONS (1)
  - Therapy non-responder [Unknown]
